FAERS Safety Report 4401431-6 (Version None)
Quarter: 2004Q3

REPORT INFORMATION
  Report Type: 
  Country: None (occurrence: None)
  Receive Date: 20040907
  Receipt Date: 20040503
  Transmission Date: 20050211
  Serious: No
  Sender: FDA-Public Use
  Company Number: US-BRISTOL-MYERS SQUIBB COMPANY-12577821

PATIENT
  Sex: Female

DRUGS (7)
  1. COUMADIN [Suspect]
     Dosage: CONSUMER TAKING COUMADIN 7.5 MG THREE TIMES WEEKLY AND 5 MG TWICE WEEKLY.
     Route: 048
  2. EVISTA [Concomitant]
  3. VIOXX [Concomitant]
  4. VICODIN [Concomitant]
  5. PRILOSEC [Concomitant]
  6. VASOTEC [Concomitant]
  7. TRICOR [Concomitant]

REACTIONS (2)
  - INTERNATIONAL NORMALISED RATIO DECREASED [None]
  - PROTHROMBIN TIME SHORTENED [None]
